FAERS Safety Report 8579148 (Version 10)
Quarter: 2014Q4

REPORT INFORMATION
  Report Type: Spontaneous
  Country: US (occurrence: US)
  Receive Date: 20120524
  Receipt Date: 20141020
  Transmission Date: 20150529
  Serious: Yes (Hospitalization, Disabling, Other)
  Sender: FDA-Public Use
  Company Number: US-009507513-1205USA02859

PATIENT
  Sex: Female
  Weight: 81.63 kg

DRUGS (6)
  1. NEXIUM [Concomitant]
     Active Substance: ESOMEPRAZOLE MAGNESIUM
     Indication: GASTROOESOPHAGEAL REFLUX DISEASE
     Dosage: UNK
     Dates: start: 2007
  2. ALENDRONATE SODIUM. [Suspect]
     Active Substance: ALENDRONATE SODIUM
     Indication: OSTEOPOROSIS
     Dosage: 70 MG, UNK
     Route: 048
     Dates: start: 20080229, end: 20080328
  3. FOSAMAX [Suspect]
     Active Substance: ALENDRONATE SODIUM
     Indication: BONE LOSS
     Dosage: 70 MG, UNK
     Route: 048
     Dates: start: 20070918
  4. ARICEPT [Concomitant]
     Active Substance: DONEPEZIL HYDROCHLORIDE
     Indication: DEMENTIA ALZHEIMER^S TYPE
     Dosage: UNK
     Dates: start: 2007
  5. FOSAMAX [Suspect]
     Active Substance: ALENDRONATE SODIUM
     Indication: OSTEOPOROSIS
     Dosage: 70 MG, UNK
     Route: 048
     Dates: start: 2009, end: 2009
  6. ALENDRONATE SODIUM. [Suspect]
     Active Substance: ALENDRONATE SODIUM
     Dosage: 70 MG, UNK
     Route: 048
     Dates: start: 20090226, end: 20091210

REACTIONS (47)
  - Skin ulcer [Unknown]
  - Increased tendency to bruise [Unknown]
  - Diverticulum [Unknown]
  - Osteoporosis [Not Recovered/Not Resolved]
  - Depression [Unknown]
  - Diverticulitis [Unknown]
  - Fractured sacrum [Unknown]
  - Somnolence [Unknown]
  - Bursitis [Unknown]
  - Radiculitis lumbosacral [Unknown]
  - Urinary tract infection [Unknown]
  - Skin lesion [Unknown]
  - Pollakiuria [Unknown]
  - Bursitis [Unknown]
  - Fatigue [Unknown]
  - Femur fracture [Not Recovered/Not Resolved]
  - Medical device complication [Unknown]
  - Fluid retention [Unknown]
  - Medical device removal [Recovering/Resolving]
  - Hyperkalaemia [Unknown]
  - Joint swelling [Unknown]
  - Bone density decreased [Not Recovered/Not Resolved]
  - Fungal infection [Unknown]
  - Spondylitis [Unknown]
  - Medical device removal [Unknown]
  - Electrocardiogram abnormal [Unknown]
  - QRS axis abnormal [Unknown]
  - Anaemia [Unknown]
  - Arthralgia [Unknown]
  - Hypothyroidism [Unknown]
  - Anxiety [Unknown]
  - Fall [Unknown]
  - Sinus bradycardia [Unknown]
  - Incontinence [Unknown]
  - Internal fixation of fracture [Recovering/Resolving]
  - Chronic kidney disease [Unknown]
  - Anaemia postoperative [Unknown]
  - Stress fracture [Not Recovered/Not Resolved]
  - Arthralgia [Unknown]
  - Abdominal hernia [Unknown]
  - Haemorrhoid operation [Unknown]
  - Skin ulcer [Unknown]
  - Cataract operation [Unknown]
  - Hernia repair [Unknown]
  - Femur fracture [Unknown]
  - Scoliosis [Unknown]
  - Urinary tract infection [Unknown]

NARRATIVE: CASE EVENT DATE: 2007
